FAERS Safety Report 14241128 (Version 2)
Quarter: 2017Q4

REPORT INFORMATION
  Report Type: Spontaneous
  Country: US (occurrence: US)
  Receive Date: 20171130
  Receipt Date: 20171205
  Transmission Date: 20180321
  Serious: No
  Sender: FDA-Public Use
  Company Number: US-PFIZER INC-2017512167

PATIENT
  Age: 86 Year

DRUGS (8)
  1. ZITHROMAX [Suspect]
     Active Substance: AZITHROMYCIN DIHYDRATE
  2. ELIQUIS [Suspect]
     Active Substance: APIXABAN
     Dosage: UNK
  3. ENTRESTO [Suspect]
     Active Substance: SACUBITRIL\VALSARTAN
  4. AMLODIPINE BESILATE [Suspect]
     Active Substance: AMLODIPINE BESYLATE
  5. LISINOPRIL. [Suspect]
     Active Substance: LISINOPRIL
  6. SEPTRA [Suspect]
     Active Substance: SULFAMETHOXAZOLE\TRIMETHOPRIM
  7. PROPAFENONE. [Suspect]
     Active Substance: PROPAFENONE
  8. SULFADIAZINE. [Suspect]
     Active Substance: SULFADIAZINE

REACTIONS (1)
  - Drug hypersensitivity [Unknown]
